FAERS Safety Report 6999992-6 (Version None)
Quarter: 2010Q3

REPORT INFORMATION
  Report Type: 
  Country: None (occurrence: None)
  Receive Date: 20100920
  Receipt Date: 20070414
  Transmission Date: 20110219
  Serious: Yes (Other)
  Sender: FDA-Public Use
  Company Number: US-ASTRAZENECA-2006UW11635

PATIENT
  Age: 15593 Day
  Sex: Female
  Weight: 113.4 kg

DRUGS (2)
  1. SEROQUEL [Suspect]
     Route: 048
     Dates: start: 20060724
  2. LOTENSIN [Concomitant]
     Route: 048
     Dates: start: 20040824

REACTIONS (5)
  - DIABETES MELLITUS [None]
  - DIABETES MELLITUS INADEQUATE CONTROL [None]
  - INSOMNIA [None]
  - PANCREATITIS [None]
  - TYPE 2 DIABETES MELLITUS [None]
